FAERS Safety Report 7045987-6 (Version None)
Quarter: 2010Q4

REPORT INFORMATION
  Report Type: 
  Country: None (occurrence: None)
  Receive Date: 20101014
  Receipt Date: 20101004
  Transmission Date: 20110411
  Serious: Yes (Hospitalization)
  Sender: FDA-Public Use
  Company Number: FR-PFIZER INC-2010127864

PATIENT
  Age: 59 Year
  Sex: Male
  Weight: 78 kg

DRUGS (10)
  1. *PREDNISONE [Suspect]
     Indication: PROSTATE CANCER
     Dosage: 5 MG, 2X/DAY
     Route: 048
     Dates: start: 20100729
  2. BLINDED *NO SUBJECT DRUG [Suspect]
     Indication: PROSTATE CANCER
     Dosage: UNK
     Route: 048
     Dates: start: 20100729
  3. BLINDED *PLACEBO [Suspect]
     Indication: PROSTATE CANCER
     Dosage: UNK
     Route: 048
     Dates: start: 20100729
  4. SUNITINIB MALATE [Suspect]
     Indication: PROSTATE CANCER
     Dosage: UNK
     Route: 048
     Dates: start: 20100729
  5. FLUDEX [Concomitant]
     Indication: COUGH
     Dosage: UNK
     Dates: start: 20091101
  6. KALEORID [Concomitant]
     Indication: PROPHYLAXIS
     Dosage: UNK
     Dates: start: 20091101
  7. ALPRAZOLAM [Concomitant]
     Indication: ANXIETY
     Dosage: UNK
     Dates: start: 20060101
  8. SPASFON [Concomitant]
     Indication: ABDOMINAL PAIN
     Dosage: UNK
     Dates: start: 20060101
  9. ZOLADEX [Concomitant]
     Indication: HORMONE THERAPY
     Dosage: UNK
     Dates: start: 20081101
  10. DOLIPRANE [Concomitant]
     Indication: PAIN
     Dosage: UNK
     Dates: start: 20100819

REACTIONS (1)
  - PHLEBITIS [None]
